FAERS Safety Report 9089432 (Version 1)
Quarter: 2013Q1

REPORT INFORMATION
  Report Type: Spontaneous
  Country: US (occurrence: US)
  Receive Date: 20130201
  Receipt Date: 20130201
  Transmission Date: 20140127
  Serious: No
  Sender: FDA-Public Use
  Company Number: US-ASTRAZENECA-2013SE03855

PATIENT
  Age: 71 Year
  Sex: Female

DRUGS (2)
  1. SYMBICORT PMDI [Suspect]
     Indication: ASTHMA
     Dosage: 160/4.5 IS 2 PUFFS BID OR TID AS NEEDED
     Route: 055
  2. VENTOLIN [Concomitant]
     Indication: RESPIRATORY THERAPY
     Route: 055

REACTIONS (4)
  - Memory impairment [Unknown]
  - Stress [Unknown]
  - Off label use [Unknown]
  - Drug dose omission [Unknown]
